FAERS Safety Report 7516033-2 (Version None)
Quarter: 2011Q2

REPORT INFORMATION
  Report Type: 
  Country: None (occurrence: None)
  Receive Date: 20110601
  Receipt Date: 20110520
  Transmission Date: 20111010
  Serious: Yes (Hospitalization)
  Sender: FDA-Public Use
  Company Number: ZA-ROCHE-763614

PATIENT
  Sex: Male
  Weight: 77.5 kg

DRUGS (3)
  1. TOCILIZUMAB [Suspect]
     Indication: RHEUMATOID ARTHRITIS
     Dosage: LAST DOSE PRIOR TO SAE 04 FEB 2011.
     Route: 042
     Dates: start: 20070209
  2. TOCILIZUMAB [Suspect]
     Dosage: THE PATIENT WAS PREVIOUSLY ENROLLED IN STUDY WA17824, AND RECEIVED TREATMENT WITH TOCILIZUMAB.
     Route: 042
  3. PREXUM PLUS [Concomitant]
     Dates: start: 20080919

REACTIONS (1)
  - ARTERIOSCLEROSIS CORONARY ARTERY [None]
